FAERS Safety Report 18609386 (Version 1)
Quarter: 2020Q4

REPORT INFORMATION
  Report Type: Spontaneous
  Country: JP (occurrence: JP)
  Receive Date: 20201214
  Receipt Date: 20201214
  Transmission Date: 20210114
  Serious: Yes (Hospitalization, Other)
  Sender: FDA-Public Use
  Company Number: JP-BRISTOL-MYERS SQUIBB COMPANY-BMS-2020-106152

PATIENT
  Age: 48 Year
  Sex: Male
  Weight: 61.6 kg

DRUGS (1)
  1. OPDIVO [Suspect]
     Active Substance: NIVOLUMAB
     Indication: METASTATIC RENAL CELL CARCINOMA
     Dosage: 240 MILLIGRAM
     Route: 041
     Dates: start: 20171127

REACTIONS (2)
  - Enterocolitis [Recovering/Resolving]
  - Enterocolitis viral [Recovering/Resolving]

NARRATIVE: CASE EVENT DATE: 20200220
